FAERS Safety Report 8141491-2 (Version None)
Quarter: 2012Q1

REPORT INFORMATION
  Report Type: 
  Country: None (occurrence: None)
  Receive Date: 20120216
  Receipt Date: 20120207
  Transmission Date: 20120608
  Serious: Yes (Life-Threatening)
  Sender: FDA-Public Use
  Company Number: US-ROCHE-1012131

PATIENT
  Sex: Female

DRUGS (5)
  1. DOCETAXEL [Suspect]
     Indication: BREAST CANCER METASTATIC
     Route: 042
     Dates: start: 20031031
  2. HERCEPTIN [Suspect]
     Dosage: VER 30 MINUTES QW  EVERY 3 WEEKS, WEEK 1 OF CYCLE 1
     Route: 042
  3. HERCEPTIN [Suspect]
     Indication: BREAST CANCER METASTATIC
     Dosage: LOADING DOSE, OVER 90 MINUTES ON DAY 1 OF WEEK 1
     Route: 042
     Dates: start: 20030822
  4. PACLITAXEL [Suspect]
     Indication: BREAST CANCER METASTATIC
     Dosage: VER 1 HOUR QW EVERY 3 WEEKS
     Route: 042
     Dates: start: 20030822, end: 20031031
  5. CARBOPLATIN [Suspect]
     Indication: BREAST CANCER METASTATIC
     Route: 042
     Dates: start: 20031031

REACTIONS (1)
  - EMBOLISM [None]
